FAERS Safety Report 7720239-7 (Version None)
Quarter: 2011Q3

REPORT INFORMATION
  Report Type: 
  Country: None (occurrence: None)
  Receive Date: 20110831
  Receipt Date: 20110824
  Transmission Date: 20111222
  Serious: Yes (Hospitalization)
  Sender: FDA-Public Use
  Company Number: FR-PFIZER INC-2011196276

PATIENT
  Age: 47 Year
  Sex: Female

DRUGS (2)
  1. ACETAMINOPHEN [Concomitant]
     Indication: INFLUENZA
     Dosage: UNK, 4X/DAY (EVERY 6 HOURS)
     Dates: start: 20110607
  2. ADVIL LIQUI-GELS [Suspect]
     Indication: INFLUENZA
     Dosage: UNK
     Route: 048
     Dates: start: 20110210, end: 20110214

REACTIONS (1)
  - HEPATITIS CHOLESTATIC [None]
